FAERS Safety Report 13158842 (Version 3)
Quarter: 2017Q1

REPORT INFORMATION
  Report Type: Spontaneous
  Country: DE (occurrence: DE)
  Receive Date: 20170127
  Receipt Date: 20170208
  Transmission Date: 20170428
  Serious: Yes (Hospitalization, Other)
  Sender: FDA-Public Use
  Company Number: DE-TEVA-732118GER

PATIENT
  Age: 79 Year
  Sex: Female
  Weight: 50 kg

DRUGS (2)
  1. CLOPIDOGREL [Suspect]
     Active Substance: CLOPIDOGREL BISULFATE
     Indication: CEREBROVASCULAR ACCIDENT PROPHYLAXIS
     Dosage: 75 MILLIGRAM DAILY;
     Route: 065
  2. DABIGATRAN ETEXILATE [Suspect]
     Active Substance: DABIGATRAN ETEXILATE
     Indication: CEREBROVASCULAR ACCIDENT PROPHYLAXIS
     Dosage: 220 MILLIGRAM DAILY;
     Route: 048

REACTIONS (7)
  - Rectal perforation [Unknown]
  - Vomiting [Unknown]
  - Haemorrhage [Not Recovered/Not Resolved]
  - Abdominal discomfort [Unknown]
  - Coagulopathy [Unknown]
  - Peritonitis [Unknown]
  - Abdominal pain [Unknown]
